FAERS Safety Report 8206280-9 (Version None)
Quarter: 2012Q1

REPORT INFORMATION
  Report Type: 
  Country: None (occurrence: None)
  Receive Date: 20120313
  Receipt Date: 20120302
  Transmission Date: 20120608
  Serious: Yes (Other)
  Sender: FDA-Public Use
  Company Number: PHHY2012DE018824

PATIENT
  Sex: Female

DRUGS (2)
  1. DIOVAN [Suspect]
     Dosage: 160 MG
  2. RASILEZ [Suspect]
     Dosage: 150 MG, PER DAY
     Dates: start: 20101101

REACTIONS (1)
  - LACUNAR INFARCTION [None]
